APPROVED DRUG PRODUCT: METHYLPREDNISOLONE
Active Ingredient: METHYLPREDNISOLONE SODIUM SUCCINATE
Strength: EQ 500MG BASE/VIAL
Dosage Form/Route: INJECTABLE;INJECTION
Application: A087535 | Product #001
Applicant: ORGANON USA INC
Approved: Jun 25, 1982 | RLD: No | RS: No | Type: DISCN